FAERS Safety Report 9659381 (Version 2)
Quarter: 2013Q4

REPORT INFORMATION
  Report Type: Report from Study
  Country: DE (occurrence: DE)
  Receive Date: 20131031
  Receipt Date: 20131031
  Transmission Date: 20140711
  Serious: Yes (Death, Hospitalization)
  Sender: FDA-Public Use
  Company Number: DE-ROCHE-1265339

PATIENT
  Age: 83 Year
  Sex: Male

DRUGS (3)
  1. RITUXIMAB [Suspect]
     Indication: RHEUMATOID ARTHRITIS
     Route: 065
     Dates: start: 20090211, end: 20101123
  2. METHOTREXATE [Concomitant]
     Indication: RHEUMATOID ARTHRITIS
     Route: 065
     Dates: start: 201204, end: 20130127
  3. LODOTRA [Concomitant]
     Route: 065
     Dates: start: 201001, end: 201212

REACTIONS (9)
  - Right ventricular failure [Fatal]
  - Pneumonia [Fatal]
  - Systemic inflammatory response syndrome [Fatal]
  - Multi-organ failure [Fatal]
  - Aortic valve stenosis [Unknown]
  - Mitral valve incompetence [Unknown]
  - Tricuspid valve incompetence [Unknown]
  - Acute myocardial infarction [Unknown]
  - Coronary artery disease [Unknown]
